FAERS Safety Report 25375489 (Version 1)
Quarter: 2025Q2

REPORT INFORMATION
  Report Type: Spontaneous
  Country: JP (occurrence: JP)
  Receive Date: 20250529
  Receipt Date: 20250529
  Transmission Date: 20250717
  Serious: Yes (Hospitalization, Other)
  Sender: BRISTOL-MYERS SQUIBB COMPANY
  Company Number: JP-ONO-2025JP008897

PATIENT
  Age: 52 Year
  Sex: Female
  Weight: 47 kg

DRUGS (1)
  1. OPDIVO [Suspect]
     Active Substance: NIVOLUMAB
     Indication: Malignant melanoma
     Route: 041
     Dates: start: 20250122, end: 20250122

REACTIONS (7)
  - Myalgia [Unknown]
  - Dysphagia [Unknown]
  - Myasthenia gravis [Recovering/Resolving]
  - Eyelid ptosis [Unknown]
  - Eye movement disorder [Unknown]
  - Dyslalia [Unknown]
  - Diplopia [Unknown]

NARRATIVE: CASE EVENT DATE: 20250205
